FAERS Safety Report 24247956 (Version 1)
Quarter: 2024Q3

REPORT INFORMATION
  Report Type: Spontaneous
  Country: PL (occurrence: PL)
  Receive Date: 20240826
  Receipt Date: 20240826
  Transmission Date: 20241017
  Serious: Yes (Hospitalization)
  Sender: TAKEDA
  Company Number: None

PATIENT
  Age: 10 Year
  Sex: Female
  Weight: 30 kg

DRUGS (6)
  1. ENTYVIO [Suspect]
     Active Substance: VEDOLIZUMAB
     Indication: Colitis ulcerative
     Dosage: 900 MILLIGRAM
     Route: 042
     Dates: start: 20200423
  2. HYDROCORTISONE [Concomitant]
     Active Substance: HYDROCORTISONE\HYDROCORTISONE ACETATE
     Indication: Adrenal insufficiency
     Dosage: 10 MILLIGRAM
     Route: 048
  3. PENTASA [Concomitant]
     Active Substance: MESALAMINE
     Indication: Colitis ulcerative
     Dosage: 3 GRAM
     Route: 048
  4. METHOTREXATE [Concomitant]
     Active Substance: METHOTREXATE
     Indication: Colitis ulcerative
     Dosage: 15 MILLIGRAM, 1/WEEK
     Route: 030
  5. GENOTROPIN [Concomitant]
     Active Substance: SOMATROPIN
     Indication: Hypopituitarism
     Dosage: 0.8 MILLIGRAM
     Route: 030
  6. Cortiment [Concomitant]
     Indication: Colitis ulcerative
     Dosage: 9 MILLIGRAM
     Route: 048

REACTIONS (5)
  - Wrong dose [Recovered/Resolved]
  - Dyspnoea [Recovered/Resolved]
  - Malaise [Recovered/Resolved]
  - Chest discomfort [Recovered/Resolved]
  - Arthralgia [Recovered/Resolved]

NARRATIVE: CASE EVENT DATE: 20200428
